FAERS Safety Report 9483465 (Version 1)
Quarter: 2013Q3

REPORT INFORMATION
  Report Type: Spontaneous
  Country: CA (occurrence: CA)
  Receive Date: 20130828
  Receipt Date: 20130828
  Transmission Date: 20140515
  Serious: Yes (Other)
  Sender: FDA-Public Use
  Company Number: CA-AMGEN-KDL270681

PATIENT
  Age: 68 Year
  Sex: Male

DRUGS (2)
  1. ENBREL [Suspect]
     Indication: PSORIASIS
     Dosage: UNK UNK, QWK
     Route: 058
     Dates: start: 20070508
  2. UNSPECIFIED TOPICAL PRODUCT [Concomitant]
     Dosage: UNK UNK, UNK
     Route: 061

REACTIONS (2)
  - Malignant melanoma [Recovering/Resolving]
  - Psoriasis [Unknown]
